FAERS Safety Report 10219194 (Version 1)
Quarter: 2014Q2

REPORT INFORMATION
  Report Type: Spontaneous
  Country: NO (occurrence: NO)
  Receive Date: 20140605
  Receipt Date: 20140605
  Transmission Date: 20141212
  Serious: Yes (Hospitalization)
  Sender: FDA-Public Use
  Company Number: NO-ACTAVIS-2014-11749

PATIENT
  Age: 86 Year
  Sex: Female

DRUGS (3)
  1. QUETIAPINE (UNKNOWN) [Suspect]
     Indication: PRODUCT USED FOR UNKNOWN INDICATION
     Dosage: 50 MG, UNKNOWN
  2. LITHIUM CITRATE (UNKNOWN) [Interacting]
     Indication: PRODUCT USED FOR UNKNOWN INDICATION
     Dosage: UNK
     Route: 065
  3. CIPRAMIL                           /00582602/ [Interacting]
     Indication: DEPRESSION
     Dosage: 50 MG, DAILY
     Route: 048
     Dates: start: 201211, end: 20140423

REACTIONS (2)
  - Bruxism [Recovered/Resolved]
  - Drug interaction [Recovered/Resolved]
